FAERS Safety Report 4851864-9 (Version None)
Quarter: 2005Q4

REPORT INFORMATION
  Report Type: 
  Country: None (occurrence: None)
  Receive Date: 20051125
  Receipt Date: 20050201
  Transmission Date: 20060501
  Serious: Yes (Other)
  Sender: FDA-Public Use
  Company Number: 2005022002

PATIENT
  Age: 83 Year
  Sex: Female
  Weight: 54.4316 kg

DRUGS (7)
  1. TIKOSYN [Suspect]
     Indication: ATRIAL FIBRILLATION
     Dosage: 250 MCG (125 MCG, TWICE A DAY), ORAL
     Route: 048
  2. TIKOSYN [Suspect]
     Dosage: 500 MCG (250 MCG, TWICE A DAY), ORAL
     Route: 048
  3. DILTIAZEM HYDROCHLORIDE [Concomitant]
  4. WARFARIN SODIUM [Concomitant]
  5. PRAVASTATIN SODIUM [Concomitant]
  6. FUROSEMIDE [Concomitant]
  7. FAMOTIDINE [Concomitant]

REACTIONS (1)
  - ATRIAL FIBRILLATION [None]
